FAERS Safety Report 12819127 (Version 1)
Quarter: 2016Q4

REPORT INFORMATION
  Report Type: Spontaneous
  Country: US (occurrence: US)
  Receive Date: 20161006
  Receipt Date: 20161006
  Transmission Date: 20170207
  Serious: Yes (Death, Hospitalization)
  Sender: FDA-Public Use
  Company Number: US-PFIZER INC-2016462319

PATIENT
  Age: 69 Year
  Sex: Female

DRUGS (5)
  1. NORVASC [Suspect]
     Active Substance: AMLODIPINE BESYLATE
  2. AROMASIN [Concomitant]
     Active Substance: EXEMESTANE
     Indication: OVARIAN CANCER
  3. MAGNESIUM OXIDE. [Suspect]
     Active Substance: MAGNESIUM OXIDE
     Dosage: 400 MG, 1X/DAY
     Route: 048
     Dates: end: 20160901
  4. AFINITOR DISPERZ [Suspect]
     Active Substance: EVEROLIMUS
     Indication: NEOPLASM MALIGNANT
     Dosage: 10 MG, DAILY
     Route: 048
     Dates: end: 20160901
  5. CENTRUM SILVER ADULTS 50+ [Suspect]
     Active Substance: MINERALS\VITAMINS
     Indication: SUPPLEMENTATION THERAPY
     Dosage: 1 DF, 1X/DAY
     Route: 048
     Dates: end: 20160901

REACTIONS (8)
  - Neoplasm progression [Fatal]
  - Dyspnoea [Unknown]
  - Fall [Unknown]
  - Dysgeusia [Unknown]
  - Diarrhoea [Unknown]
  - Feeling abnormal [Unknown]
  - Cough [Unknown]
  - Abdominal pain upper [Unknown]

NARRATIVE: CASE EVENT DATE: 2016
